FAERS Safety Report 9000151 (Version 1)
Quarter: 2013Q1

REPORT INFORMATION
  Report Type: Spontaneous
  Country: FR (occurrence: FR)
  Receive Date: 20130102
  Receipt Date: 20130102
  Transmission Date: 20140127
  Serious: Yes (Death, Other)
  Sender: FDA-Public Use
  Company Number: FR-GENZYME-CAMP-1002047

PATIENT
  Age: 75 Year
  Sex: Female
  Weight: 77 kg

DRUGS (9)
  1. CAMPATH [Suspect]
     Dosage: 30 MG, UNK
     Route: 065
     Dates: start: 20110330, end: 20110909
  2. ALLOPURINOL [Concomitant]
     Dosage: 1 DF, BID
     Route: 065
  3. DEXAMETHASONE [Concomitant]
     Indication: PRODUCT USED FOR UNKNOWN INDICATION
     Dosage: 40 MG, UNK
     Route: 065
  4. VALACICLOVIR [Concomitant]
     Indication: PRODUCT USED FOR UNKNOWN INDICATION
     Dosage: 500 MG, BID
     Route: 065
  5. OMEPRAZOLE [Concomitant]
     Indication: PRODUCT USED FOR UNKNOWN INDICATION
     Dosage: 200 MG, QD
     Route: 065
  6. METOCLOPRAMID [Concomitant]
     Indication: PRODUCT USED FOR UNKNOWN INDICATION
     Dosage: 1 DF, TID
     Route: 065
  7. ACETAMINOPHEN [Concomitant]
     Indication: PRODUCT USED FOR UNKNOWN INDICATION
     Dosage: 3 G, QD
     Route: 065
  8. COTRIMOXAZOLE [Concomitant]
     Indication: PRODUCT USED FOR UNKNOWN INDICATION
     Dosage: UNK
     Route: 065
  9. FOLINIC ACID [Concomitant]
     Indication: PRODUCT USED FOR UNKNOWN INDICATION
     Dosage: 25 MG, 1X/W
     Route: 065

REACTIONS (3)
  - Chronic lymphocytic leukaemia [Fatal]
  - Gastroenteritis cryptosporidial [Recovered/Resolved]
  - Lymphocyte count decreased [Recovered/Resolved]
